FAERS Safety Report 23052571 (Version 1)
Quarter: 2023Q4

REPORT INFORMATION
  Report Type: Spontaneous
  Country: MY (occurrence: MY)
  Receive Date: 20231011
  Receipt Date: 20231011
  Transmission Date: 20240110
  Serious: Yes (Hospitalization, Other)
  Sender: FDA-Public Use
  Company Number: MY-IPCA LABORATORIES LIMITED-IPC-2023-MY-001758

PATIENT

DRUGS (7)
  1. METOCLOPRAMIDE [Suspect]
     Active Substance: METOCLOPRAMIDE
     Indication: Hyperemesis gravidarum
     Dosage: 10 MILLIGRAM, TID
     Route: 042
  2. DIAZEPAM [Suspect]
     Active Substance: DIAZEPAM
     Indication: Oculogyric crisis
     Dosage: 5 MILLIGRAM
     Route: 042
  3. DIAZEPAM [Suspect]
     Active Substance: DIAZEPAM
     Dosage: UNK
     Route: 042
  4. THIAMINE [Suspect]
     Active Substance: THIAMINE
     Indication: Hyperreflexia
     Dosage: UNK
     Route: 042
  5. PYRIDOXINE [Suspect]
     Active Substance: PYRIDOXINE
     Indication: Hyperreflexia
     Dosage: UNK
     Route: 065
  6. PROCHLORPERAZINE [Suspect]
     Active Substance: PROCHLORPERAZINE
     Indication: Hyperreflexia
     Dosage: UNK
     Route: 042
  7. UNSPECIFIED INGREDIENT [Suspect]
     Active Substance: UNSPECIFIED INGREDIENT
     Indication: Hyperreflexia
     Dosage: UNK
     Route: 042

REACTIONS (4)
  - Oculogyric crisis [Recovered/Resolved]
  - Musculoskeletal stiffness [Recovered/Resolved]
  - Hyperreflexia [Recovered/Resolved]
  - Maternal exposure during pregnancy [Unknown]
